FAERS Safety Report 11981573 (Version 1)
Quarter: 2016Q1

REPORT INFORMATION
  Report Type: Spontaneous
  Country: US (occurrence: None)
  Receive Date: 20160128
  Receipt Date: 20160128
  Transmission Date: 20160526
  Serious: Yes (Other)
  Sender: FDA-Public Use
  Company Number: US-ALSI-201600016

PATIENT
  Sex: Male

DRUGS (1)
  1. OXYGEN. [Suspect]
     Active Substance: OXYGEN

REACTIONS (4)
  - Chronic obstructive pulmonary disease [None]
  - Hyperoxia [None]
  - Hypercapnia [None]
  - Respiratory acidosis [None]
